FAERS Safety Report 14195354 (Version 1)
Quarter: 2017Q4

REPORT INFORMATION
  Report Type: Spontaneous
  Country: GB (occurrence: GB)
  Receive Date: 20171116
  Receipt Date: 20171116
  Transmission Date: 20180321
  Serious: Yes (Other)
  Sender: FDA-Public Use
  Company Number: None

PATIENT
  Age: 53 Year
  Sex: Female
  Weight: 58.5 kg

DRUGS (1)
  1. CORTISONE CREAM [Suspect]
     Active Substance: HYDROCORTISONE
     Indication: ECZEMA
     Route: 061

REACTIONS (10)
  - Skin disorder [None]
  - Drug dependence [None]
  - Pain [None]
  - Swelling [None]
  - Skin exfoliation [None]
  - Burning sensation [None]
  - Skin fissures [None]
  - Alopecia [None]
  - Rash [None]
  - Hair growth abnormal [None]

NARRATIVE: CASE EVENT DATE: 20000101
